FAERS Safety Report 11647401 (Version 1)
Quarter: 2015Q4

REPORT INFORMATION
  Report Type: Report from Study
  Country: IN (occurrence: IN)
  Receive Date: 20151021
  Receipt Date: 20151021
  Transmission Date: 20160304
  Serious: Yes (Life-Threatening, Other)
  Sender: FDA-Public Use
  Company Number: IN-ROCHE-1648441

PATIENT
  Sex: Female

DRUGS (6)
  1. BACTRIM [Concomitant]
     Active Substance: SULFAMETHOXAZOLE\TRIMETHOPRIM
     Dosage: HALF TABLET ORALLY ONCE A DAY
     Route: 048
     Dates: start: 20150908, end: 20151009
  2. CELLCEPT [Suspect]
     Active Substance: MYCOPHENOLATE MOFETIL\MYCOPHENOLATE MOFETIL HYDROCHLORIDE
     Indication: RENAL TRANSPLANT
     Dosage: 500MG TWO TIMES A DAY ORALLY
     Route: 048
     Dates: start: 20150908, end: 20151012
  3. PANTOP [Concomitant]
     Dosage: 40MG ORALLY ONCE A DAY
     Route: 048
     Dates: start: 20150908, end: 20151009
  4. CYCLOSPORINE. [Concomitant]
     Active Substance: CYCLOSPORINE
     Dosage: 125MG ORALLY TWO TIMES A DAY
     Route: 048
     Dates: start: 20150908, end: 20151009
  5. PREDNISOLONE. [Concomitant]
     Active Substance: PREDNISOLONE
     Dosage: 20MG ORALLY ONCE A DAY
     Route: 048
     Dates: start: 20150908, end: 20151009
  6. VALGANCICLOVIR [Concomitant]
     Active Substance: VALGANCICLOVIR
     Dosage: 450MG TABLETS ORALLY ONCE A DAY
     Route: 048
     Dates: start: 20150908, end: 20151009

REACTIONS (2)
  - Diarrhoea [Unknown]
  - Transplant rejection [Not Recovered/Not Resolved]
